FAERS Safety Report 4341877-8 (Version None)
Quarter: 2004Q2

REPORT INFORMATION
  Report Type: 
  Country: None (occurrence: None)
  Receive Date: 20040415
  Receipt Date: 20040325
  Transmission Date: 20050107
  Serious: Yes (Other)
  Sender: FDA-Public Use
  Company Number: USA040363234

PATIENT
  Age: 37 Year
  Sex: Female

DRUGS (4)
  1. ZYPREXA [Suspect]
     Dosage: 20 MG
     Dates: start: 19980101
  2. LITHIUM [Concomitant]
  3. DEPAKOTE [Concomitant]
  4. TEGRETOL [Concomitant]

REACTIONS (4)
  - DISEASE RECURRENCE [None]
  - OBESITY [None]
  - PANCREATITIS [None]
  - RENAL DISORDER [None]
